FAERS Safety Report 4530899-X (Version None)
Quarter: 2004Q4

REPORT INFORMATION
  Report Type: 
  Country: None (occurrence: None)
  Receive Date: 20041217
  Receipt Date: 20040130
  Transmission Date: 20050328
  Serious: Yes (Hospitalization, Other)
  Sender: FDA-Public Use
  Company Number: US-MERCK-0402USA00066

PATIENT
  Age: 59 Year
  Sex: Female
  Weight: 62 kg

DRUGS (8)
  1. VIOXX [Suspect]
     Indication: OSTEOARTHRITIS
     Route: 048
     Dates: start: 20011207, end: 20011211
  2. ASPIRIN [Concomitant]
     Route: 065
     Dates: start: 19980501, end: 20040101
  3. LIPITOR [Concomitant]
     Route: 065
     Dates: start: 19980101
  4. METFORMIN [Concomitant]
     Route: 065
  5. PROZAC [Concomitant]
     Route: 065
  6. PRILOSEC [Concomitant]
     Route: 065
  7. GLUCOPHAGE [Concomitant]
     Route: 065
  8. WELLBUTRIN [Concomitant]
     Route: 065

REACTIONS (33)
  - ABDOMINAL PAIN UPPER [None]
  - AGGRESSION [None]
  - ARTHROPATHY [None]
  - ASTHENIA [None]
  - ATAXIA [None]
  - BACK PAIN [None]
  - CARDIOMEGALY [None]
  - CAROTID ARTERY OCCLUSION [None]
  - CEREBROVASCULAR ACCIDENT [None]
  - CHEST DISCOMFORT [None]
  - CHEST PAIN [None]
  - CHOLELITHIASIS [None]
  - DIZZINESS [None]
  - DRUG HYPERSENSITIVITY [None]
  - FALL [None]
  - GASTROOESOPHAGEAL REFLUX DISEASE [None]
  - HIATUS HERNIA [None]
  - HYPERTENSION [None]
  - HYPOTENSION [None]
  - INCONTINENCE [None]
  - INTENTION TREMOR [None]
  - INTERVERTEBRAL DISC DEGENERATION [None]
  - NON-CARDIAC CHEST PAIN [None]
  - RESPIRATORY FAILURE [None]
  - SHOCK [None]
  - SINUS DISORDER [None]
  - SPINAL COLUMN STENOSIS [None]
  - SPINAL COMPRESSION FRACTURE [None]
  - TONGUE BITING [None]
  - TRANSIENT ISCHAEMIC ATTACK [None]
  - TREMOR [None]
  - VERTIGO [None]
  - VOMITING [None]
